FAERS Safety Report 9105916 (Version 1)
Quarter: 2013Q1

REPORT INFORMATION
  Report Type: Spontaneous
  Country: US (occurrence: US)
  Receive Date: 20130220
  Receipt Date: 20130220
  Transmission Date: 20140127
  Serious: Yes (Hospitalization)
  Sender: FDA-Public Use
  Company Number: US-ELI_LILLY_AND_COMPANY-US201302003776

PATIENT
  Age: 68 None
  Sex: Female

DRUGS (3)
  1. FORTEO [Suspect]
     Indication: OSTEOPOROSIS
     Dosage: 20 UG, QD
     Dates: start: 201211
  2. PREDNISONE [Concomitant]
     Dosage: 1 MG, BID
  3. METHOTREXATE [Concomitant]
     Dosage: 4 DF, WEEKLY (1/W)

REACTIONS (2)
  - Influenza [Unknown]
  - Memory impairment [Unknown]
